FAERS Safety Report 7383682-4 (Version None)
Quarter: 2011Q1

REPORT INFORMATION
  Report Type: 
  Country: None (occurrence: None)
  Receive Date: 20110330
  Receipt Date: 20110322
  Transmission Date: 20110831
  Serious: Yes (Hospitalization)
  Sender: FDA-Public Use
  Company Number: US-GILEAD-2010-0034796

PATIENT
  Sex: Female

DRUGS (12)
  1. METOLAZONE [Concomitant]
  2. ALLOPURINOL [Concomitant]
  3. CITALOPRAM HYDROBROMIDE [Concomitant]
  4. LETAIRIS [Suspect]
     Indication: PULMONARY ARTERIAL HYPERTENSION
     Route: 048
     Dates: start: 20090211
  5. LEVOTHYROXINE SODIUM [Concomitant]
  6. TREPROSTINIL [Concomitant]
  7. PRIMIDONE [Concomitant]
  8. POTASSIUM CHLORIDE [Concomitant]
  9. SILDENAFIL [Concomitant]
  10. ASPIRIN [Concomitant]
  11. FUROSEMIDE [Concomitant]
  12. ALENDRONATE [Concomitant]

REACTIONS (1)
  - NON-CARDIAC CHEST PAIN [None]
